FAERS Safety Report 4429632-1 (Version None)
Quarter: 2004Q3

REPORT INFORMATION
  Report Type: 
  Country: None (occurrence: None)
  Receive Date: 20040816
  Receipt Date: 20020816
  Transmission Date: 20050211
  Serious: Yes (Hospitalization, Other)
  Sender: FDA-Public Use
  Company Number: KII-2002-0012917

PATIENT
  Sex: Male

DRUGS (2)
  1. OXYCONTIN [Suspect]
     Indication: PAIN
     Dosage: INTRAVENOUS
     Route: 042
  2. PERCOCET [Suspect]
     Indication: PAIN
     Dosage: INTRAVENOUS
     Route: 042

REACTIONS (4)
  - DRUG DEPENDENCE [None]
  - MEDICATION ERROR [None]
  - POLYSUBSTANCE ABUSE [None]
  - SEPTIC SHOCK [None]
